FAERS Safety Report 9011172 (Version 1)
Quarter: 2013Q1

REPORT INFORMATION
  Report Type: Spontaneous
  Country: US (occurrence: US)
  Receive Date: 20130109
  Receipt Date: 20130109
  Transmission Date: 20140127
  Serious: Yes (Hospitalization)
  Sender: FDA-Public Use
  Company Number: US-JNJFOC-20130100226

PATIENT
  Age: 58 Year
  Sex: Female
  Weight: 74.84 kg

DRUGS (4)
  1. BENADRYL ALLERGY [Suspect]
     Indication: HYPERSENSITIVITY
     Route: 048
     Dates: start: 20121111, end: 20121212
  2. BENADRYL ALLERGY [Suspect]
     Indication: UPPER-AIRWAY COUGH SYNDROME
     Route: 048
     Dates: start: 20121111, end: 20121212
  3. TYLENOL [Suspect]
     Route: 065
  4. TYLENOL [Suspect]
     Indication: HEADACHE
     Route: 065

REACTIONS (4)
  - Anaphylactic reaction [Recovered/Resolved]
  - Dyspnoea [Unknown]
  - Condition aggravated [Unknown]
  - Migraine [Unknown]
